FAERS Safety Report 9992709 (Version 1)
Quarter: 2014Q1

REPORT INFORMATION
  Report Type: Spontaneous
  Country: US (occurrence: US)
  Receive Date: 20140310
  Receipt Date: 20140310
  Transmission Date: 20141002
  Serious: Yes (Other)
  Sender: FDA-Public Use
  Company Number: US-PFIZER INC-2014068495

PATIENT
  Age: 64 Year
  Sex: Female
  Weight: 67.12 kg

DRUGS (5)
  1. CELEBREX [Suspect]
     Indication: PAIN
     Dosage: 1X/DAY
     Route: 048
     Dates: end: 201310
  2. NEXIUM [Concomitant]
     Dosage: UNK
     Dates: end: 201310
  3. ADVAIR [Concomitant]
     Dosage: UNK
     Dates: end: 201310
  4. PROVENTIL [Concomitant]
     Dosage: UNK
  5. LIPITOR [Concomitant]
     Indication: BLOOD CHOLESTEROL INCREASED
     Dosage: UNK

REACTIONS (1)
  - Myocardial infarction [Unknown]
